FAERS Safety Report 9981348 (Version 1)
Quarter: 2014Q1

REPORT INFORMATION
  Report Type: Spontaneous
  Country: US (occurrence: None)
  Receive Date: 20140306
  Receipt Date: 20140306
  Transmission Date: 20141002
  Serious: Yes (Other)
  Sender: FDA-Public Use
  Company Number: None

PATIENT
  Age: 39 Year
  Sex: Female
  Weight: 93.9 kg

DRUGS (1)
  1. AZITHROMYCIN 250 MG GREENSTONE BRAND [Suspect]
     Indication: UPPER RESPIRATORY TRACT INFECTION
     Dosage: 2 ON DAY 1; 1 FOR NEXT 4 DAYS
     Route: 048
     Dates: start: 20140223, end: 20140228

REACTIONS (2)
  - Heart rate increased [None]
  - Panic reaction [None]
